FAERS Safety Report 14362084 (Version 1)
Quarter: 2018Q1

REPORT INFORMATION
  Report Type: Spontaneous
  Country: TR (occurrence: TR)
  Receive Date: 20180108
  Receipt Date: 20180108
  Transmission Date: 20180509
  Serious: Yes (Hospitalization, Other)
  Sender: FDA-Public Use
  Company Number: TR-ALVOGEN-2018-ALVOGEN-094753

PATIENT

DRUGS (4)
  1. DOXORUBICIN [Suspect]
     Active Substance: DOXORUBICIN
     Route: 033
  2. BLEOMYCIN [Suspect]
     Active Substance: BLEOMYCIN SULFATE
     Route: 033
  3. DACARBAZINE. [Suspect]
     Active Substance: DACARBAZINE
     Route: 033
  4. VINBLASTINE [Suspect]
     Active Substance: VINBLASTINE
     Route: 033

REACTIONS (2)
  - Growth retardation [Unknown]
  - Foetal exposure during pregnancy [Unknown]
